FAERS Safety Report 24614435 (Version 1)
Quarter: 2024Q4

REPORT INFORMATION
  Report Type: Other
  Country: CN (occurrence: CN)
  Receive Date: 20241113
  Receipt Date: 20241113
  Transmission Date: 20250115
  Serious: Yes (Other)
  Sender: INCYTE
  Company Number: CN-002147023-NVSC2024CN218203

PATIENT

DRUGS (3)
  1. RUXOLITINIB [Suspect]
     Active Substance: RUXOLITINIB
     Indication: Acute graft versus host disease
     Dosage: 5 MG, QD (IN MORNING)
     Route: 048
     Dates: start: 20241014, end: 20241028
  2. RUXOLITINIB [Suspect]
     Active Substance: RUXOLITINIB
     Dosage: 10 MG, QD (IN THE EVENING)
     Route: 048
     Dates: start: 20241014, end: 20241021
  3. RUXOLITINIB [Suspect]
     Active Substance: RUXOLITINIB
     Dosage: 5 MG, QD (IN THE EVENING)
     Route: 048
     Dates: start: 20241022, end: 20241023

REACTIONS (5)
  - Myelosuppression [Recovering/Resolving]
  - Abdominal pain [Recovering/Resolving]
  - Rash [Unknown]
  - Faecal volume decreased [Unknown]
  - Disease progression [Unknown]

NARRATIVE: CASE EVENT DATE: 20241014
